FAERS Safety Report 11420813 (Version 1)
Quarter: 2015Q3

REPORT INFORMATION
  Report Type: Spontaneous
  Country: US (occurrence: US)
  Receive Date: 20150826
  Receipt Date: 20150826
  Transmission Date: 20151125
  Serious: Yes (Hospitalization)
  Sender: FDA-Public Use
  Company Number: US-UNICHEM LABORATORIES LIMITED-UCM201508-000713

PATIENT
  Age: 43 Year
  Sex: Male
  Weight: 99.79 kg

DRUGS (2)
  1. HYDROCHOLOTHIAZIDE 25 MG TABLET [Suspect]
     Active Substance: HYDROCHLOROTHIAZIDE
     Indication: HYPERTENSION
     Route: 046
  2. LOSARTAN. [Concomitant]
     Active Substance: LOSARTAN
     Indication: HYPERTENSION

REACTIONS (4)
  - Internal haemorrhage [Unknown]
  - Haematemesis [Unknown]
  - Blood urine present [Unknown]
  - Haematochezia [Unknown]

NARRATIVE: CASE EVENT DATE: 20150803
